FAERS Safety Report 18564521 (Version 2)
Quarter: 2020Q4

REPORT INFORMATION
  Report Type: Spontaneous
  Country: JP (occurrence: JP)
  Receive Date: 20201201
  Receipt Date: 20201216
  Transmission Date: 20210114
  Serious: Yes (Death, Hospitalization, Other)
  Sender: FDA-Public Use
  Company Number: JP-PFIZER INC-2020470048

PATIENT
  Age: 67 Year
  Sex: Male
  Weight: 48.7 kg

DRUGS (5)
  1. SOMAVERT [Suspect]
     Active Substance: PEGVISOMANT
     Indication: ACROMEGALY
     Dosage: 10 MG, 3 TIMES, WEEKLY
     Route: 058
     Dates: start: 20150618
  2. SUREPOST [Concomitant]
     Active Substance: REPAGLINIDE
     Dosage: 1 TABLET, 3X/DAY
     Route: 048
     Dates: start: 2015
  3. INSULIN GLARGINE [Concomitant]
     Active Substance: INSULIN GLARGINE
     Dosage: 4 UNITS, 1X/DAY
     Route: 058
     Dates: start: 20200827
  4. TRULICITY [Concomitant]
     Active Substance: DULAGLUTIDE
     Dosage: 1 AMPLE, WEEKLY
     Route: 058
     Dates: start: 20190514
  5. MIGLITOL. [Concomitant]
     Active Substance: MIGLITOL
     Dosage: 1 TABLET, 2X/DAY
     Route: 048
     Dates: start: 20200625

REACTIONS (6)
  - End stage renal disease [Unknown]
  - Sepsis [Fatal]
  - Off label use [Unknown]
  - Gangrene [Unknown]
  - Peripheral arterial occlusive disease [Unknown]
  - Diabetic nephropathy [Unknown]

NARRATIVE: CASE EVENT DATE: 20150618
